FAERS Safety Report 24298058 (Version 1)
Quarter: 2024Q3

REPORT INFORMATION
  Report Type: Other
  Country: IT (occurrence: IT)
  Receive Date: 20240909
  Receipt Date: 20240909
  Transmission Date: 20241016
  Serious: Yes (Hospitalization)
  Sender: EYWA PHARMA
  Company Number: IT-Eywa Pharma Inc.-2161380

PATIENT
  Age: 53 Year
  Sex: Male

DRUGS (2)
  1. VALPROIC ACID [Suspect]
     Active Substance: VALPROIC ACID
     Indication: Bipolar I disorder
     Route: 065
  2. ARIPIPRAZOLE [Concomitant]
     Active Substance: ARIPIPRAZOLE
     Route: 065

REACTIONS (3)
  - Pleural effusion [Recovered/Resolved]
  - Product use in unapproved indication [Unknown]
  - Pleurisy [Recovered/Resolved]
